FAERS Safety Report 21904418 (Version 3)
Quarter: 2023Q1

REPORT INFORMATION
  Report Type: Spontaneous
  Country: US (occurrence: US)
  Receive Date: 20230124
  Receipt Date: 20230210
  Transmission Date: 20230418
  Serious: No
  Sender: FDA-Public Use
  Company Number: US-ALKERMES INC.-ALK-2023-000266

PATIENT
  Sex: Female

DRUGS (2)
  1. VIVITROL [Suspect]
     Active Substance: NALTREXONE
     Indication: Alcoholism
     Dosage: 380 MILLIGRAM, QMO
     Route: 030
  2. KETAMINE [Suspect]
     Active Substance: KETAMINE
     Indication: Product used for unknown indication
     Dosage: HIGH DOSAGE
     Route: 065

REACTIONS (8)
  - Tremor [Unknown]
  - Hallucination [Unknown]
  - Soliloquy [Unknown]
  - Gait disturbance [Unknown]
  - Coordination abnormal [Unknown]
  - Tearfulness [Unknown]
  - Vomiting [Unknown]
  - Alcoholism [Unknown]
